FAERS Safety Report 11390721 (Version 1)
Quarter: 2015Q3

REPORT INFORMATION
  Report Type: Spontaneous
  Country: US (occurrence: US)
  Receive Date: 20150818
  Receipt Date: 20150818
  Transmission Date: 20151125
  Serious: No
  Sender: FDA-Public Use
  Company Number: US-ROCHE-1362801

PATIENT
  Sex: Female

DRUGS (6)
  1. RIBAVIRIN. [Suspect]
     Active Substance: RIBAVIRIN
     Indication: CHRONIC HEPATITIS C
     Dosage: IN DIVED DOSAGE 600/600, RIBAVIRIN IS NON ROCHE (MFG-SANDOZ)
     Route: 048
     Dates: start: 20140321
  2. PEGASYS [Suspect]
     Active Substance: PEGINTERFERON ALFA-2A
     Indication: CHRONIC HEPATITIS C
     Dosage: 52 WEEKS
     Route: 058
     Dates: start: 2003
  3. PEGASYS [Suspect]
     Active Substance: PEGINTERFERON ALFA-2A
     Dosage: FOR 48 WEEKS
     Route: 065
     Dates: start: 2000
  4. SOVALDI [Suspect]
     Active Substance: SOFOSBUVIR
     Indication: CHRONIC HEPATITIS C
     Route: 048
     Dates: start: 20140321
  5. RIBAVIRIN. [Suspect]
     Active Substance: RIBAVIRIN
     Dosage: 52 WEEKS
     Route: 048
     Dates: start: 2003
  6. PEGASYS [Suspect]
     Active Substance: PEGINTERFERON ALFA-2A
     Route: 058
     Dates: start: 20140321

REACTIONS (11)
  - Hepatic cirrhosis [Unknown]
  - Aspartate aminotransferase increased [Unknown]
  - Fatigue [Unknown]
  - Crying [Unknown]
  - Hypoglycaemia [Unknown]
  - Cough [Unknown]
  - Nausea [Unknown]
  - Treatment failure [Unknown]
  - Vision blurred [Unknown]
  - Decreased appetite [Unknown]
  - Alanine aminotransferase increased [Unknown]
